FAERS Safety Report 19509823 (Version 1)
Quarter: 2021Q3

REPORT INFORMATION
  Report Type: Spontaneous
  Country: CA (occurrence: CA)
  Receive Date: 20210708
  Receipt Date: 20210708
  Transmission Date: 20211014
  Serious: Yes (Hospitalization)
  Sender: FDA-Public Use
  Company Number: CA-PFIZER INC-2021772165

PATIENT
  Age: 6 Year
  Sex: Female
  Weight: 19 kg

DRUGS (16)
  1. CALCIUM LACTATE [Concomitant]
     Active Substance: CALCIUM LACTATE
  2. ACETAMINOPHEN. [Concomitant]
     Active Substance: ACETAMINOPHEN
  3. ONE ALPHA [Concomitant]
     Active Substance: ALFACALCIDOL
  4. SALBUTAMOL [Concomitant]
     Active Substance: ALBUTEROL
  5. LEVETIRACETAM. [Concomitant]
     Active Substance: LEVETIRACETAM
  6. OMEPRAZOLE. [Concomitant]
     Active Substance: OMEPRAZOLE
  7. CHOLECALCIFEROL [Concomitant]
     Active Substance: CHOLECALCIFEROL
  8. DIMENHYDRINATE. [Concomitant]
     Active Substance: DIMENHYDRINATE
  9. POLYETHYLENE GLYCOL [MACROGOL] [Concomitant]
     Active Substance: POLYETHYLENE GLYCOLS
  10. FERROUS FUMARATE [Concomitant]
     Active Substance: FERROUS FUMARATE
  11. ZOLEDRONIC ACID [Suspect]
     Active Substance: ZOLEDRONIC ACID
     Indication: OSTEOPOROSIS
     Dosage: UNK, SINGLE
     Route: 042
  12. TOPIRAMATE. [Concomitant]
     Active Substance: TOPIRAMATE
  13. VIGABATRIN. [Concomitant]
     Active Substance: VIGABATRIN
  14. CELECOXIB. [Concomitant]
     Active Substance: CELECOXIB
  15. DOMPERIDONE [Concomitant]
     Active Substance: DOMPERIDONE
  16. FLUTICASONE. [Concomitant]
     Active Substance: FLUTICASONE

REACTIONS (7)
  - Off label use [Unknown]
  - Pyrexia [Recovered/Resolved]
  - Gastrointestinal viral infection [Recovered/Resolved]
  - Generalised tonic-clonic seizure [Recovered/Resolved]
  - Hypocalcaemia [Recovered/Resolved]
  - Vomiting [Recovered/Resolved]
  - Hypophosphataemia [Recovered/Resolved]
